FAERS Safety Report 4342711-2 (Version None)
Quarter: 2004Q1

REPORT INFORMATION
  Report Type: 
  Country: None (occurrence: None)
  Receive Date: 20040213
  Receipt Date: 20031022
  Transmission Date: 20041129
  Serious: Yes (Other)
  Sender: FDA-Public Use
  Company Number: 349849

PATIENT
  Age: 52 Year
  Sex: Male
  Weight: 158.8 kg

DRUGS (2)
  1. PEGASYS [Suspect]
     Dosage: SUBCUTANEOUS
     Route: 058
     Dates: start: 20031008, end: 20031020
  2. REBETOL [Suspect]
     Dosage: 2 PER DAY ORAL
     Route: 048
     Dates: start: 20031008, end: 20031020

REACTIONS (1)
  - RASH GENERALISED [None]
